FAERS Safety Report 15887134 (Version 4)
Quarter: 2019Q1

REPORT INFORMATION
  Report Type: Spontaneous
  Country: JP (occurrence: JP)
  Receive Date: 20190130
  Receipt Date: 20190213
  Transmission Date: 20190417
  Serious: Yes (Death)
  Sender: FDA-Public Use
  Company Number: JP-BEH-2019098961

PATIENT
  Age: 74 Year
  Sex: Male
  Weight: 66 kg

DRUGS (10)
  1. FEBURIC [Concomitant]
     Active Substance: FEBUXOSTAT
     Dosage: 10 MG, DAILY
     Route: 048
  2. MANNITOL 20% A.N.B [Concomitant]
     Indication: BRAIN HERNIATION
     Dosage: 500 ML, DAILY
     Route: 042
     Dates: start: 20190109, end: 20190109
  3. ISOTONIC SODIUM CHLORIDE SOLUTION [Concomitant]
     Active Substance: SODIUM CHLORIDE
     Dosage: 500 ML, QD
     Route: 065
     Dates: start: 20190109, end: 20190110
  4. WARFARIN [Suspect]
     Active Substance: WARFARIN
     Dosage: 4 MG, EVERY DAY
     Route: 048
  5. KCENTRA [Suspect]
     Active Substance: COAGULATION FACTOR IX HUMAN\COAGULATION FACTOR VII HUMAN\COAGULATION FACTOR X HUMAN\PROTEIN C\PROTEIN S HUMAN\PROTHROMBIN
     Indication: INTERNATIONAL NORMALISED RATIO INCREASED
  6. NICARDIPINE HYDROCHLORIDE. [Concomitant]
     Active Substance: NICARDIPINE HYDROCHLORIDE
     Dosage: 50 ML, DAILY
     Route: 042
     Dates: start: 20190109, end: 20190110
  7. CARVEDILOL. [Concomitant]
     Active Substance: CARVEDILOL
     Dosage: 2.5 MG, DAILY
     Route: 048
  8. KCENTRA [Suspect]
     Active Substance: COAGULATION FACTOR IX HUMAN\COAGULATION FACTOR VII HUMAN\COAGULATION FACTOR X HUMAN\PROTEIN C\PROTEIN S HUMAN\PROTHROMBIN
     Indication: CEREBRAL HAEMORRHAGE
     Dosage: NOT REPORTED, SINGLE
     Route: 042
     Dates: start: 20190109, end: 20190109
  9. BAYASPIRIN [Suspect]
     Active Substance: ASPIRIN
     Dosage: 100 MG, EVERY DAY
     Route: 048
  10. PRIMPERAN [Concomitant]
     Active Substance: METOCLOPRAMIDE HYDROCHLORIDE
     Dosage: 2 ML, DAILY
     Route: 065
     Dates: start: 20190109, end: 20190109

REACTIONS (2)
  - Cerebral haemorrhage [Fatal]
  - Brain herniation [Fatal]

NARRATIVE: CASE EVENT DATE: 20190109
